FAERS Safety Report 12693353 (Version 2)
Quarter: 2016Q3

REPORT INFORMATION
  Report Type: Spontaneous
  Country: US (occurrence: US)
  Receive Date: 20160829
  Receipt Date: 20160916
  Transmission Date: 20161109
  Serious: Yes (Other)
  Sender: FDA-Public Use
  Company Number: US-PFIZER INC-2016399495

PATIENT
  Age: 53 Year
  Sex: Female

DRUGS (1)
  1. LIPITOR [Suspect]
     Active Substance: ATORVASTATIN CALCIUM
     Indication: BLOOD CHOLESTEROL INCREASED
     Dosage: 80 MG, UNK
     Dates: start: 20140812

REACTIONS (3)
  - Haemorrhage [Not Recovered/Not Resolved]
  - Muscle spasms [Not Recovered/Not Resolved]
  - Hepatic cirrhosis [Not Recovered/Not Resolved]

NARRATIVE: CASE EVENT DATE: 201508
